FAERS Safety Report 9469742 (Version 1)
Quarter: 2013Q3

REPORT INFORMATION
  Report Type: Spontaneous
  Country: US (occurrence: US)
  Receive Date: 20130822
  Receipt Date: 20130822
  Transmission Date: 20140515
  Serious: Yes (Hospitalization)
  Sender: FDA-Public Use
  Company Number: PHEH2013US017774

PATIENT
  Sex: Female

DRUGS (2)
  1. GLEEVEC [Suspect]
     Indication: CHRONIC MYELOID LEUKAEMIA
     Dosage: 400 MG, DAILY
  2. GLEEVEC [Suspect]
     Dosage: 200 MG, PER DAY
     Route: 048

REACTIONS (4)
  - Vascular occlusion [Unknown]
  - Nausea [Unknown]
  - Muscle spasms [Unknown]
  - White blood cell count decreased [Unknown]
